FAERS Safety Report 11732198 (Version 1)
Quarter: 2015Q4

REPORT INFORMATION
  Report Type: Spontaneous
  Country: US (occurrence: US)
  Receive Date: 20151113
  Receipt Date: 20151113
  Transmission Date: 20160304
  Serious: No
  Sender: FDA-Public Use
  Company Number: US-ASTRAZENECA-2015SF09108

PATIENT
  Age: 76 Year
  Sex: Female
  Weight: 49.9 kg

DRUGS (1)
  1. NEXIUM 24HR [Suspect]
     Active Substance: ESOMEPRAZOLE MAGNESIUM
     Indication: GASTROOESOPHAGEAL REFLUX DISEASE
     Route: 048
     Dates: start: 2015

REACTIONS (7)
  - Chest pain [Unknown]
  - Burning sensation [Unknown]
  - Pain [Unknown]
  - Weight decreased [Unknown]
  - Dyspepsia [Unknown]
  - Intentional product misuse [Unknown]
  - Product use issue [Unknown]
